FAERS Safety Report 18710137 (Version 2)
Quarter: 2021Q1

REPORT INFORMATION
  Report Type: Spontaneous
  Country: US (occurrence: US)
  Receive Date: 20210106
  Receipt Date: 20210108
  Transmission Date: 20210419
  Serious: Yes (Other)
  Sender: FDA-Public Use
  Company Number: US-SA-2020SA374850

PATIENT

DRUGS (7)
  1. CALCIUM [Suspect]
     Active Substance: CALCIUM
     Indication: OSTEOPENIA
  2. TUMS [Suspect]
     Active Substance: CALCIUM CARBONATE
     Indication: GASTROOESOPHAGEAL REFLUX DISEASE
     Dosage: 2000 MG, BID
  3. TESTOSTERONE. [Concomitant]
     Active Substance: TESTOSTERONE
     Indication: EMPTY SELLA SYNDROME
     Dosage: EXOGENOUS
  4. COLECALCIFEROL [Suspect]
     Active Substance: CHOLECALCIFEROL
     Indication: OSTEOPENIA
     Dosage: 400 IU, BID
     Route: 048
  5. THIAZIDE [Suspect]
     Active Substance: UNSPECIFIED INGREDIENT
     Indication: HYPERTENSION
  6. ZANTAC [Suspect]
     Active Substance: RANITIDINE HYDROCHLORIDE
     Indication: GASTROOESOPHAGEAL REFLUX DISEASE
  7. CALCIUM CARBONATE. [Suspect]
     Active Substance: CALCIUM CARBONATE
     Indication: GASTROOESOPHAGEAL REFLUX DISEASE
     Dosage: 500 MG, QD
     Route: 048

REACTIONS (11)
  - Feeling abnormal [Recovering/Resolving]
  - Hypercalcaemia [Recovered/Resolved]
  - Milk-alkali syndrome [Recovering/Resolving]
  - Acute kidney injury [Recovered/Resolved]
  - Hypomagnesaemia [Recovering/Resolving]
  - Condition aggravated [Recovering/Resolving]
  - Abdominal tenderness [Recovering/Resolving]
  - Constipation [Recovering/Resolving]
  - Mental status changes [Recovering/Resolving]
  - Abdominal pain [Recovered/Resolved]
  - Metabolic alkalosis [Recovering/Resolving]
